FAERS Safety Report 17056064 (Version 1)
Quarter: 2019Q4

REPORT INFORMATION
  Report Type: Spontaneous
  Country: FR (occurrence: FR)
  Receive Date: 20191121
  Receipt Date: 20191121
  Transmission Date: 20200122
  Serious: Yes (Other)
  Sender: FDA-Public Use
  Company Number: FR-ROCHE-2471609

PATIENT
  Age: 63 Year
  Sex: Male
  Weight: 66 kg

DRUGS (1)
  1. TECENTRIQ [Suspect]
     Active Substance: ATEZOLIZUMAB
     Indication: LUNG ADENOCARCINOMA STAGE IV
     Route: 041
     Dates: start: 20190722, end: 20191011

REACTIONS (1)
  - Cardiac dysfunction [Recovering/Resolving]
